FAERS Safety Report 5638969-X (Version None)
Quarter: 2008Q1

REPORT INFORMATION
  Report Type: 
  Country: None (occurrence: None)
  Receive Date: 20080222
  Receipt Date: 20080212
  Transmission Date: 20080703
  Serious: Yes (Life-Threatening, Disabling)
  Sender: FDA-Public Use
  Company Number: 2008SP003276

PATIENT
  Age: 62 Year
  Sex: Male

DRUGS (2)
  1. CELESTONE SOLUSPAN [Suspect]
     Indication: TENDON RUPTURE
     Dosage: 1 ML; ONCE; IA
     Route: 014
     Dates: start: 20060529
  2. LIDOCAIN (LIDOCAINE HYDROCHLORIDE) [Suspect]
     Indication: TENDON RUPTURE
     Dosage: 1 ML; ; IA
     Route: 014
     Dates: start: 20060529

REACTIONS (10)
  - ALCOHOL USE [None]
  - FATIGUE [None]
  - HYPOAESTHESIA [None]
  - MUSCULAR WEAKNESS [None]
  - PAROSMIA [None]
  - SEXUAL DYSFUNCTION [None]
  - SNEEZING [None]
  - SUFFOCATION FEELING [None]
  - THINKING ABNORMAL [None]
  - WRIST FRACTURE [None]
